FAERS Safety Report 14719990 (Version 2)
Quarter: 2018Q2

REPORT INFORMATION
  Report Type: Report from Study
  Country: CN (occurrence: CN)
  Receive Date: 20180405
  Receipt Date: 20180417
  Transmission Date: 20180711
  Serious: Yes (Other)
  Sender: FDA-Public Use
  Company Number: PHHY2017CN006635

PATIENT
  Age: 32 Year
  Sex: Male

DRUGS (4)
  1. MYFORTIC [Suspect]
     Active Substance: MYCOPHENOLATE SODIUM
     Indication: RENAL TRANSPLANT
     Dosage: 1440 MG, UNK
     Route: 048
     Dates: start: 20161109, end: 20161207
  2. MYFORTIC [Suspect]
     Active Substance: MYCOPHENOLATE SODIUM
     Dosage: 1080 MG, UNK
     Route: 048
     Dates: start: 20161217, end: 20170118
  3. MYFORTIC [Suspect]
     Active Substance: MYCOPHENOLATE SODIUM
     Dosage: 900 MG, UNK
     Route: 048
     Dates: start: 20170119, end: 20170308
  4. MYFORTIC [Suspect]
     Active Substance: MYCOPHENOLATE SODIUM
     Dosage: 900 MG, UNK
     Route: 048
     Dates: start: 20170413

REACTIONS (5)
  - Liver injury [Recovered/Resolved]
  - Gastritis [Recovered/Resolved]
  - Nausea [Recovered/Resolved]
  - Rash [Recovered/Resolved]
  - Diarrhoea [Recovered/Resolved]

NARRATIVE: CASE EVENT DATE: 20161113
